FAERS Safety Report 9496590 (Version 2)
Quarter: 2013Q3

REPORT INFORMATION
  Report Type: Spontaneous
  Country: JP (occurrence: JP)
  Receive Date: 20130904
  Receipt Date: 20130910
  Transmission Date: 20140515
  Serious: No
  Sender: FDA-Public Use
  Company Number: JP-JNJFOC-20130817310

PATIENT
  Age: 64 Year
  Sex: Female

DRUGS (1)
  1. TRAMCET [Suspect]
     Indication: PAIN
     Dosage: 37.5/325 MG ONCE A DAY
     Route: 048

REACTIONS (1)
  - Malaise [Recovered/Resolved]
